FAERS Safety Report 6855825-X (Version None)
Quarter: 2010Q3

REPORT INFORMATION
  Report Type: 
  Country: None (occurrence: None)
  Receive Date: 20100715
  Receipt Date: 20100715
  Transmission Date: 20110219
  Serious: Yes (Other)
  Sender: FDA-Public Use
  Company Number: None

PATIENT
  Sex: Male
  Weight: 87.0906 kg

DRUGS (1)
  1. ROSIGLITAZONE [Suspect]

REACTIONS (3)
  - BALANCE DISORDER [None]
  - FALL [None]
  - JOINT INJURY [None]
